FAERS Safety Report 24274625 (Version 1)
Quarter: 2024Q3

REPORT INFORMATION
  Report Type: Spontaneous
  Country: CN (occurrence: CN)
  Receive Date: 20240902
  Receipt Date: 20240902
  Transmission Date: 20241017
  Serious: Yes (Other)
  Sender: SANDOZ
  Company Number: CN-002147023-NVSC2023CN040924

PATIENT
  Age: 68 Year
  Sex: Female
  Weight: 60 kg

DRUGS (42)
  1. FLUOXETINE HYDROCHLORIDE [Suspect]
     Active Substance: FLUOXETINE HYDROCHLORIDE
     Indication: Cerebral haemorrhage
     Dosage: 20 MG, QD
     Route: 048
     Dates: start: 20211231, end: 20220104
  2. FLUOXETINE HYDROCHLORIDE [Suspect]
     Active Substance: FLUOXETINE HYDROCHLORIDE
     Indication: Epilepsy
  3. FLUOXETINE HYDROCHLORIDE [Suspect]
     Active Substance: FLUOXETINE HYDROCHLORIDE
     Indication: Hydrocephalus
  4. FLUOXETINE HYDROCHLORIDE [Suspect]
     Active Substance: FLUOXETINE HYDROCHLORIDE
     Indication: Intracranial aneurysm
  5. FLUOXETINE HYDROCHLORIDE [Suspect]
     Active Substance: FLUOXETINE HYDROCHLORIDE
     Indication: Intracranial infection
  6. FLUOXETINE HYDROCHLORIDE [Suspect]
     Active Substance: FLUOXETINE HYDROCHLORIDE
     Indication: Post stroke depression
  7. METHYLCOBALAMIN [Suspect]
     Active Substance: METHYLCOBALAMIN
     Indication: Cerebral haemorrhage
     Dosage: 0.5 MG, TID
     Route: 048
     Dates: start: 20211231, end: 20220104
  8. METHYLCOBALAMIN [Suspect]
     Active Substance: METHYLCOBALAMIN
     Indication: Epilepsy
  9. METHYLCOBALAMIN [Suspect]
     Active Substance: METHYLCOBALAMIN
     Indication: Hydrocephalus
  10. METHYLCOBALAMIN [Suspect]
     Active Substance: METHYLCOBALAMIN
     Indication: Intracranial aneurysm
  11. METHYLCOBALAMIN [Suspect]
     Active Substance: METHYLCOBALAMIN
     Indication: Intracranial infection
  12. METHYLCOBALAMIN [Suspect]
     Active Substance: METHYLCOBALAMIN
     Indication: Post stroke depression
  13. METOPROLOL TARTRATE [Suspect]
     Active Substance: METOPROLOL TARTRATE
     Indication: Cerebral haemorrhage
     Dosage: 25 MG, BID
     Route: 065
     Dates: start: 20211231, end: 20220104
  14. METOPROLOL TARTRATE [Suspect]
     Active Substance: METOPROLOL TARTRATE
     Indication: Epilepsy
  15. METOPROLOL TARTRATE [Suspect]
     Active Substance: METOPROLOL TARTRATE
     Indication: Hydrocephalus
  16. METOPROLOL TARTRATE [Suspect]
     Active Substance: METOPROLOL TARTRATE
     Indication: Intracranial aneurysm
  17. METOPROLOL TARTRATE [Suspect]
     Active Substance: METOPROLOL TARTRATE
     Indication: Intracranial infection
  18. METOPROLOL TARTRATE [Suspect]
     Active Substance: METOPROLOL TARTRATE
     Indication: Post stroke depression
  19. OXCARBAZEPINE [Suspect]
     Active Substance: OXCARBAZEPINE
     Indication: Cerebral haemorrhage
     Dosage: 0.6 G, Q12H
     Route: 048
     Dates: start: 20211231, end: 20220107
  20. OXCARBAZEPINE [Suspect]
     Active Substance: OXCARBAZEPINE
     Indication: Epilepsy
  21. OXCARBAZEPINE [Suspect]
     Active Substance: OXCARBAZEPINE
     Indication: Hydrocephalus
  22. OXCARBAZEPINE [Suspect]
     Active Substance: OXCARBAZEPINE
     Indication: Intracranial aneurysm
  23. OXCARBAZEPINE [Suspect]
     Active Substance: OXCARBAZEPINE
     Indication: Intracranial infection
  24. OXCARBAZEPINE [Suspect]
     Active Substance: OXCARBAZEPINE
     Indication: Post stroke depression
  25. ORYZANOL [Suspect]
     Active Substance: GAMMA ORYZANOL
     Indication: Cerebral haemorrhage
     Dosage: 10 MG, TID
     Route: 048
     Dates: start: 20211231, end: 20220104
  26. ORYZANOL [Suspect]
     Active Substance: GAMMA ORYZANOL
     Indication: Epilepsy
  27. ORYZANOL [Suspect]
     Active Substance: GAMMA ORYZANOL
     Indication: Hydrocephalus
  28. ORYZANOL [Suspect]
     Active Substance: GAMMA ORYZANOL
     Indication: Intracranial aneurysm
  29. ORYZANOL [Suspect]
     Active Substance: GAMMA ORYZANOL
     Indication: Intracranial infection
  30. ORYZANOL [Suspect]
     Active Substance: GAMMA ORYZANOL
     Indication: Post stroke depression
  31. PARLODEL [Suspect]
     Active Substance: BROMOCRIPTINE MESYLATE
     Indication: Cerebral haemorrhage
     Dosage: 2.5 MG, QD, FOR 5 DAYS
     Route: 048
     Dates: start: 20211231, end: 20220104
  32. PARLODEL [Suspect]
     Active Substance: BROMOCRIPTINE MESYLATE
     Indication: Epilepsy
  33. PARLODEL [Suspect]
     Active Substance: BROMOCRIPTINE MESYLATE
     Indication: Hydrocephalus
  34. PARLODEL [Suspect]
     Active Substance: BROMOCRIPTINE MESYLATE
     Indication: Intracranial aneurysm
  35. PARLODEL [Suspect]
     Active Substance: BROMOCRIPTINE MESYLATE
     Indication: Intracranial infection
  36. PARLODEL [Suspect]
     Active Substance: BROMOCRIPTINE MESYLATE
     Indication: Post stroke depression
  37. VALPROATE SODIUM [Suspect]
     Active Substance: VALPROATE SODIUM
     Indication: Cerebral haemorrhage
     Dosage: 10 ML, BID
     Route: 048
     Dates: start: 20211231, end: 20220104
  38. VALPROATE SODIUM [Suspect]
     Active Substance: VALPROATE SODIUM
     Indication: Epilepsy
  39. VALPROATE SODIUM [Suspect]
     Active Substance: VALPROATE SODIUM
     Indication: Hydrocephalus
  40. VALPROATE SODIUM [Suspect]
     Active Substance: VALPROATE SODIUM
     Indication: Intracranial aneurysm
  41. VALPROATE SODIUM [Suspect]
     Active Substance: VALPROATE SODIUM
     Indication: Intracranial infection
  42. VALPROATE SODIUM [Suspect]
     Active Substance: VALPROATE SODIUM
     Indication: Post stroke depression

REACTIONS (5)
  - Rash [Recovering/Resolving]
  - Rash [Recovering/Resolving]
  - Drug eruption [Recovering/Resolving]
  - Drug hypersensitivity [Recovering/Resolving]
  - Product use in unapproved indication [Unknown]

NARRATIVE: CASE EVENT DATE: 20220104
